FAERS Safety Report 24076132 (Version 1)
Quarter: 2024Q3

REPORT INFORMATION
  Report Type: Spontaneous
  Country: US (occurrence: US)
  Receive Date: 20240710
  Receipt Date: 20240710
  Transmission Date: 20241016
  Serious: Yes (Hospitalization)
  Sender: JOHNSON AND JOHNSON
  Company Number: US-JNJFOC-20240711091

PATIENT
  Age: 75 Year
  Sex: Female

DRUGS (4)
  1. OPSUMIT [Suspect]
     Active Substance: MACITENTAN
     Indication: Pulmonary arterial hypertension
     Route: 048
     Dates: end: 20240611
  2. TYVASO DPI [Suspect]
     Active Substance: TREPROSTINIL
     Indication: Pulmonary arterial hypertension
     Route: 045
     Dates: start: 202405
  3. TYVASO DPI [Suspect]
     Active Substance: TREPROSTINIL
     Route: 045
     Dates: start: 20240618
  4. TYVASO DPI [Suspect]
     Active Substance: TREPROSTINIL
     Route: 045

REACTIONS (2)
  - Acute respiratory distress syndrome [Unknown]
  - Cough [Unknown]

NARRATIVE: CASE EVENT DATE: 20240611
